FAERS Safety Report 17247386 (Version 1)
Quarter: 2019Q4

REPORT INFORMATION
  Report Type: Spontaneous
  Country: US (occurrence: US)
  Receive Date: 20191213
  Receipt Date: 20191213
  Transmission Date: 20200122
  Serious: Yes (Hospitalization)
  Sender: FDA-Public Use
  Company Number: None

PATIENT
  Sex: Female

DRUGS (12)
  1. MELOXICAM TAB 15MG [Concomitant]
     Active Substance: MELOXICAM
  2. COSENTYX [Suspect]
     Active Substance: SECUKINUMAB
     Indication: PSORIATIC ARTHROPATHY
     Dosage: ?          OTHER FREQUENCY:2 PENS EVERY 4 WK;?
     Route: 058
     Dates: start: 20190701
  3. VITAMIN C TAB 500 MG [Concomitant]
  4. CYCLOBENZAPR TAB 10MG [Concomitant]
  5. CEPHALEXIN CAP 500 MG [Concomitant]
  6. CALCIUM CARB TAB 125MG [Concomitant]
  7. COSENTYX [Suspect]
     Active Substance: SECUKINUMAB
     Indication: DERMATITIS ATOPIC
  8. GABAPENTIN CAP 100MG [Concomitant]
  9. ESTRADIOL TAB 2MG [Concomitant]
  10. HYDROXYCHLOR TAB 200MG [Concomitant]
     Active Substance: HYDROXYCHLOROQUINE
  11. D3 CP 10000UNIT [Concomitant]
  12. XANAX TAB 0.25MG [Concomitant]

REACTIONS (1)
  - Pneumonia [None]
